FAERS Safety Report 5361790-7 (Version None)
Quarter: 2007Q2

REPORT INFORMATION
  Report Type: 
  Country: None (occurrence: None)
  Receive Date: 20070619
  Receipt Date: 20070607
  Transmission Date: 20071010
  Serious: Yes (Hospitalization, Disabling)
  Sender: FDA-Public Use
  Company Number: NL-JNJFOC-20070201784

PATIENT
  Sex: Female
  Weight: 9 kg

DRUGS (11)
  1. TOPIRAMATE [Suspect]
     Route: 048
  2. TOPIRAMATE [Suspect]
     Indication: PARTIAL SEIZURES
     Route: 048
  3. VALPROIC ACID [Concomitant]
  4. VALPROIC ACID [Concomitant]
  5. PARACETAMOL [Concomitant]
     Route: 065
  6. DEPAKENE [Concomitant]
     Route: 048
  7. DEPAKENE [Concomitant]
     Indication: CONVULSION
     Route: 048
  8. VIGABETRINE [Concomitant]
     Indication: CONVULSION
     Route: 065
  9. STESOLID [Concomitant]
     Indication: PAIN
     Route: 065
  10. INFLUVAC [Concomitant]
     Indication: INFLUENZA
     Route: 030
  11. MOVICOLON [Concomitant]
     Indication: CONSTIPATION
     Route: 065

REACTIONS (2)
  - FLUID INTAKE REDUCED [None]
  - SOMNOLENCE [None]
